FAERS Safety Report 4284098-X (Version None)
Quarter: 2004Q1

REPORT INFORMATION
  Report Type: 
  Country: None (occurrence: None)
  Receive Date: 20040203
  Receipt Date: 20040126
  Transmission Date: 20041129
  Serious: Yes (Death)
  Sender: FDA-Public Use
  Company Number: 200410331FR

PATIENT
  Age: 81 Year
  Sex: Male

DRUGS (3)
  1. ARAVA [Suspect]
     Indication: RHEUMATOID ARTHRITIS
     Route: 048
     Dates: start: 20000101, end: 20040101
  2. CORTANCYL [Concomitant]
     Route: 048
  3. EFFERALGAN [Concomitant]

REACTIONS (1)
  - PROSTATE CANCER METASTATIC [None]
